FAERS Safety Report 21075360 (Version 1)
Quarter: 2022Q3

REPORT INFORMATION
  Report Type: Spontaneous
  Country: CN (occurrence: CN)
  Receive Date: 20220713
  Receipt Date: 20220713
  Transmission Date: 20221027
  Serious: Yes (Other)
  Sender: FDA-Public Use
  Company Number: None

PATIENT
  Age: 61 Year
  Sex: Female
  Weight: 55 kg

DRUGS (5)
  1. CYCLOPHOSPHAMIDE [Suspect]
     Active Substance: CYCLOPHOSPHAMIDE
     Indication: Breast cancer female
     Dosage: 850 MG, QD, DOSAGE FORM- POWDER INJECTION, FIRST CHEMOTHERAPY- CYCLOPHOSPHAMIDE (850 MG) + NS (45 ML
     Route: 042
     Dates: start: 20220516, end: 20220516
  2. SODIUM CHLORIDE [Suspect]
     Active Substance: SODIUM CHLORIDE
     Indication: Medication dilution
     Dosage: 45 ML, QD, FIRST CHEMOTHERAPY- CYCLOPHOSPHAMIDE (850 MG) + NS (45 ML)
     Route: 042
     Dates: start: 20220516, end: 20220516
  3. SODIUM CHLORIDE [Suspect]
     Active Substance: SODIUM CHLORIDE
     Dosage: 100 ML, QD, FIRST CHEMOTHERAPY- EPIRUBICIN HYDROCHLORIDE (126 MG) + NS (100 ML)
     Route: 041
     Dates: start: 20220516, end: 20220516
  4. EPIRUBICIN [Suspect]
     Active Substance: EPIRUBICIN
     Indication: Breast cancer female
     Dosage: 126 MG, QD, FIRST CHEMOTHERAPY- EPIRUBICIN HYDROCHLORIDE (126 MG) + NS (100 ML)
     Route: 041
     Dates: start: 20220516, end: 20220516
  5. Jin you li [Concomitant]
     Indication: Product used for unknown indication
     Dosage: 6 MG
     Route: 058
     Dates: start: 20220517

REACTIONS (2)
  - White blood cell count decreased [Recovered/Resolved]
  - Agranulocytosis [Recovered/Resolved]

NARRATIVE: CASE EVENT DATE: 20220523
